FAERS Safety Report 25449558 (Version 2)
Quarter: 2025Q3

REPORT INFORMATION
  Report Type: Spontaneous
  Country: US (occurrence: US)
  Receive Date: 20250618
  Receipt Date: 20250816
  Transmission Date: 20251020
  Serious: No
  Sender: ALEXION PHARMACEUTICALS
  Company Number: US-AstraZeneca-CH-00890295AP

PATIENT
  Sex: Male

DRUGS (2)
  1. LOKELMA [Suspect]
     Active Substance: SODIUM ZIRCONIUM CYCLOSILICATE
     Dosage: 10 GRAM, TIW
  2. POTASSIUM [Concomitant]
     Active Substance: POTASSIUM
     Route: 065

REACTIONS (6)
  - Bowel movement irregularity [Unknown]
  - Off label use [Unknown]
  - Renal disorder [Unknown]
  - Oral infection [Unknown]
  - Product residue present [Unknown]
  - Blood potassium decreased [Unknown]
